FAERS Safety Report 14806467 (Version 1)
Quarter: 2018Q2

REPORT INFORMATION
  Report Type: Spontaneous
  Country: US (occurrence: US)
  Receive Date: 20180425
  Receipt Date: 20180425
  Transmission Date: 20180711
  Serious: Yes (Hospitalization, Disabling)
  Sender: FDA-Public Use
  Company Number: US-BAYER-2018-074493

PATIENT
  Sex: Female

DRUGS (1)
  1. MAGNEVIST [Suspect]
     Active Substance: GADOPENTETATE DIMEGLUMINE
     Dosage: UNK UNK, ONCE
     Dates: start: 20160324, end: 20160324

REACTIONS (6)
  - Emotional distress [None]
  - Pain [None]
  - Anaphylactic reaction [None]
  - Impaired work ability [None]
  - Scar [None]
  - Injury [None]

NARRATIVE: CASE EVENT DATE: 20160324
